FAERS Safety Report 19793688 (Version 2)
Quarter: 2021Q3

REPORT INFORMATION
  Report Type: Spontaneous
  Country: GB (occurrence: GB)
  Receive Date: 20210906
  Receipt Date: 20210920
  Transmission Date: 20211014
  Serious: Yes (Hospitalization, Other)
  Sender: FDA-Public Use
  Company Number: GB-ALIMERA SCIENCES LIMITED-GB-A16013-21-000189

PATIENT

DRUGS (4)
  1. OZURDEX [Concomitant]
     Active Substance: DEXAMETHASONE
     Indication: UVEITIS
     Dosage: UNK
     Dates: start: 20210907
  2. MYCOPHENOLATE MOFETIL. [Concomitant]
     Active Substance: MYCOPHENOLATE MOFETIL
     Indication: PRODUCT USED FOR UNKNOWN INDICATION
     Dosage: 1 GRAM, BID
  3. OZURDEX [Concomitant]
     Active Substance: DEXAMETHASONE
     Indication: CYSTOID MACULAR OEDEMA
  4. ILUVIEN [Suspect]
     Active Substance: FLUOCINOLONE ACETONIDE
     Indication: MACULAR OEDEMA
     Dosage: 0.25 MICROGRAM, QD ? RIGHT EYE
     Route: 031
     Dates: start: 20210816

REACTIONS (3)
  - Cystoid macular oedema [Not Recovered/Not Resolved]
  - Vitritis [Not Recovered/Not Resolved]
  - Off label use [Unknown]

NARRATIVE: CASE EVENT DATE: 20210816
